FAERS Safety Report 9688444 (Version 1)
Quarter: 2013Q4

REPORT INFORMATION
  Report Type: Spontaneous
  Country: US (occurrence: None)
  Receive Date: 20131113
  Receipt Date: 20131113
  Transmission Date: 20140711
  Serious: No
  Sender: FDA-Public Use
  Company Number: None

PATIENT
  Age: 19 Year
  Sex: Female

DRUGS (1)
  1. MINOCYCLINE [Suspect]
     Dosage: 917 DAYS
     Dates: start: 201003, end: 20120917

REACTIONS (5)
  - Drug-induced liver injury [None]
  - Basedow^s disease [None]
  - Antinuclear antibody positive [None]
  - Aspartate aminotransferase increased [None]
  - Alanine aminotransferase increased [None]
